FAERS Safety Report 5956338-X (Version None)
Quarter: 2008Q4

REPORT INFORMATION
  Report Type: 
  Country: None (occurrence: None)
  Receive Date: 20081118
  Receipt Date: 20081113
  Transmission Date: 20090506
  Serious: Yes (Death)
  Sender: FDA-Public Use
  Company Number: PHHY2008JP28278

PATIENT
  Age: 73 Year

DRUGS (2)
  1. NEORAL [Suspect]
     Indication: PEMPHIGUS
     Dosage: 100 MG, QD
     Route: 048
  2. CELESTONE [Suspect]
     Dosage: 2 MG, QD
     Route: 048

REACTIONS (1)
  - PNEUMOCYSTIS JIROVECI PNEUMONIA [None]
